FAERS Safety Report 15614389 (Version 1)
Quarter: 2018Q4

REPORT INFORMATION
  Report Type: Spontaneous
  Country: RU (occurrence: RU)
  Receive Date: 20181113
  Receipt Date: 20181113
  Transmission Date: 20190205
  Serious: Yes (Other)
  Sender: FDA-Public Use
  Company Number: PHHY2018RU152644

PATIENT
  Age: 11 Year
  Sex: Female
  Weight: 30 kg

DRUGS (9)
  1. ASPARCAM [Concomitant]
     Indication: HYPOKALAEMIA
     Dosage: UNK
     Route: 048
     Dates: start: 20180421, end: 20180504
  2. TRILEPTAL [Suspect]
     Active Substance: OXCARBAZEPINE
     Indication: EPILEPSY
     Dosage: 1050 MG, QD (450+600 MG)
     Route: 048
     Dates: start: 20180601, end: 20180616
  3. CONVULEX (VALPROIC ACID) [Concomitant]
     Active Substance: VALPROIC ACID
     Indication: EPILEPSY
     Dosage: UNK
     Route: 048
     Dates: start: 20180228, end: 20180616
  4. ELZEPAM [Concomitant]
     Indication: SEIZURE
     Dosage: UNK
     Route: 042
     Dates: start: 20180621, end: 20180622
  5. PREDNISOLONE. [Concomitant]
     Active Substance: PREDNISOLONE
     Indication: SEIZURE
     Dosage: UNK
     Route: 042
     Dates: start: 20180621, end: 20180622
  6. KEPPRA [Concomitant]
     Active Substance: LEVETIRACETAM
     Indication: EPILEPSY
     Dosage: UNK
     Route: 048
     Dates: start: 20180626
  7. DIACARB [Concomitant]
     Indication: EPILEPSY
     Dosage: UNK
     Route: 048
     Dates: start: 20180421, end: 20180504
  8. LEVOCARNITINE. [Concomitant]
     Active Substance: LEVOCARNITINE
     Indication: METABOLIC DISORDER
     Dosage: UNK
     Route: 048
     Dates: start: 20180505, end: 20180505
  9. CONVULEX (VALPROIC ACID) [Concomitant]
     Active Substance: VALPROIC ACID
     Dosage: UNK
     Route: 048
     Dates: start: 20180616

REACTIONS (3)
  - Hypotonia [Recovering/Resolving]
  - Vomiting [Recovering/Resolving]
  - Somnolence [Recovering/Resolving]

NARRATIVE: CASE EVENT DATE: 20180630
